FAERS Safety Report 6527530-0 (Version None)
Quarter: 2010Q1

REPORT INFORMATION
  Report Type: 
  Country: None (occurrence: None)
  Receive Date: 20100105
  Receipt Date: 20091229
  Transmission Date: 20100710
  Serious: Yes (Other)
  Sender: FDA-Public Use
  Company Number: US-JNJCH-2009033255

PATIENT
  Age: 71 Year
  Sex: Male
  Weight: 68 kg

DRUGS (2)
  1. BENADRYL [Suspect]
     Indication: SLEEP DISORDER
     Dosage: TEXT:ONE TABLET AT NIGHT
     Route: 048
  2. VICOPROFEN [Concomitant]
     Indication: PAIN
     Dosage: TEXT:UNSPECIFIED
     Route: 065

REACTIONS (5)
  - GLAUCOMA [None]
  - HEADACHE [None]
  - OFF LABEL USE [None]
  - PRODUCT QUALITY ISSUE [None]
  - VISION BLURRED [None]
